FAERS Safety Report 25979194 (Version 1)
Quarter: 2025Q4

REPORT INFORMATION
  Report Type: Spontaneous
  Country: CN (occurrence: CN)
  Receive Date: 20251030
  Receipt Date: 20251030
  Transmission Date: 20260118
  Serious: Yes (Hospitalization, Other)
  Sender: BAXTER
  Company Number: None

PATIENT
  Age: 58 Year
  Sex: Female
  Weight: 45 kg

DRUGS (4)
  1. CYCLOPHOSPHAMIDE [Suspect]
     Active Substance: CYCLOPHOSPHAMIDE
     Indication: Invasive ductal breast carcinoma
     Dosage: 0.8 G, QD
     Route: 041
     Dates: start: 20251010, end: 20251010
  2. EPIRUBICIN HYDROCHLORIDE [Suspect]
     Active Substance: EPIRUBICIN HYDROCHLORIDE
     Indication: Invasive ductal breast carcinoma
     Dosage: 120 MG, QD
     Route: 041
     Dates: start: 20251010, end: 20251010
  3. SODIUM CHLORIDE [Suspect]
     Active Substance: SODIUM CHLORIDE
     Indication: Medication dilution
     Dosage: 0.9% NS 100 ML, QD (WITH CYCLOPHOSPHAMIDE)
     Route: 041
     Dates: start: 20251010, end: 20251010
  4. SODIUM CHLORIDE [Suspect]
     Active Substance: SODIUM CHLORIDE
     Dosage: 0.9% NS 100 ML, QD (WITH EPIRUBICIN)
     Route: 041
     Dates: start: 20251010, end: 20251010

REACTIONS (4)
  - Hypochromic anaemia [Recovering/Resolving]
  - White blood cell count decreased [Recovering/Resolving]
  - Neutrophil count decreased [Recovering/Resolving]
  - Agranulocytosis [Unknown]

NARRATIVE: CASE EVENT DATE: 20251020
